FAERS Safety Report 16245558 (Version 1)
Quarter: 2019Q2

REPORT INFORMATION
  Report Type: Spontaneous
  Country: US (occurrence: US)
  Receive Date: 20190426
  Receipt Date: 20190426
  Transmission Date: 20190711
  Serious: No
  Sender: FDA-Public Use
  Company Number: US-BRISTOL-MYERS SQUIBB COMPANY-BMS-2019-040616

PATIENT
  Sex: Male

DRUGS (1)
  1. ELIQUIS [Suspect]
     Active Substance: APIXABAN
     Indication: PRODUCT USED FOR UNKNOWN INDICATION
     Dosage: 5 MILLIGRAM, BID
     Route: 065
     Dates: start: 201904

REACTIONS (7)
  - Panic attack [Unknown]
  - Dizziness [Unknown]
  - Blood pressure abnormal [Unknown]
  - Insomnia [Unknown]
  - Tremor [Unknown]
  - Somnolence [Unknown]
  - Upper-airway cough syndrome [Unknown]
